FAERS Safety Report 17133720 (Version 1)
Quarter: 2019Q4

REPORT INFORMATION
  Report Type: Spontaneous
  Country: PL (occurrence: PL)
  Receive Date: 20191210
  Receipt Date: 20191210
  Transmission Date: 20200122
  Serious: Yes (Hospitalization, Other)
  Sender: FDA-Public Use
  Company Number: PL-AUROBINDO-AUR-APL-2019-075653

PATIENT
  Age: 2 Year
  Sex: Male

DRUGS (2)
  1. CEFUROXIME. [Suspect]
     Active Substance: CEFUROXIME
     Indication: LARYNGITIS
     Dosage: UNK
     Route: 065
     Dates: start: 201610
  2. AMOXICILLIN. [Suspect]
     Active Substance: AMOXICILLIN
     Indication: ANGINA PECTORIS
     Dosage: UNK
     Route: 065
     Dates: start: 201610

REACTIONS (4)
  - Tracheal atresia [Recovered/Resolved]
  - Product use in unapproved indication [Unknown]
  - Laryngeal stenosis [Recovered/Resolved]
  - Toxic epidermal necrolysis [Recovered/Resolved]

NARRATIVE: CASE EVENT DATE: 20161104
